FAERS Safety Report 9119447 (Version 1)
Quarter: 2013Q1

REPORT INFORMATION
  Report Type: Spontaneous
  Country: US (occurrence: None)
  Receive Date: 20130222
  Receipt Date: 20130222
  Transmission Date: 20140127
  Serious: Yes (Other)
  Sender: FDA-Public Use
  Company Number: None

PATIENT
  Sex: 0

DRUGS (1)
  1. ESTRADIOL\TESTOSTERONE [Suspect]
     Dates: start: 20130112

REACTIONS (8)
  - Drug ineffective [None]
  - Product quality issue [None]
  - Hot flush [None]
  - Hyperhidrosis [None]
  - Hair growth abnormal [None]
  - Fatigue [None]
  - Alopecia [None]
  - Muscle spasms [None]
